FAERS Safety Report 8910670 (Version 1)
Quarter: 2012Q4

REPORT INFORMATION
  Report Type: 
  Country: GB (occurrence: None)
  Receive Date: 20121113
  Receipt Date: 20121113
  Transmission Date: 20130627
  Serious: Yes (Other)
  Sender: FDA-Public Use
  Company Number: AUR-APL-2012-04753

PATIENT
  Age: 54 Year
  Sex: Male

DRUGS (7)
  1. RIBAVIRIN [Suspect]
     Indication: HEPATITIS C
     Route: 048
     Dates: start: 20120916
  2. PEGINTERFERON ALFA-2B [Suspect]
     Indication: HEPATITIS C
     Route: 058
     Dates: start: 20120916
  3. INCIVO [Suspect]
     Indication: HEPATITIS C
     Dosage: (750 mg, 3 in 1 D)
     Route: 048
     Dates: start: 20120916
  4. ATAZANAVIR (ATAZANAVIR) [Concomitant]
  5. LAMIVUDINE (LAMIVUDINE) [Concomitant]
  6. RALTEGRAVIR (RALTEGRAVIR) [Concomitant]
  7. RITONAVIR (RITONAVIR) [Concomitant]

REACTIONS (15)
  - Off label use [None]
  - Night sweats [None]
  - Rectal haemorrhage [None]
  - Pyrexia [None]
  - Decreased appetite [None]
  - Depression [None]
  - Paraesthesia [None]
  - Pain [None]
  - Anal pruritus [None]
  - Nausea [None]
  - Jaundice [None]
  - Dyspnoea [None]
  - Insomnia [None]
  - Balance disorder [None]
  - Feeling abnormal [None]
